FAERS Safety Report 5188327-X (Version None)
Quarter: 2006Q4

REPORT INFORMATION
  Report Type: 
  Country: None (occurrence: None)
  Receive Date: 20061221
  Receipt Date: 20061025
  Transmission Date: 20070319
  Serious: Yes (Death, Hospitalization)
  Sender: FDA-Public Use
  Company Number: FR-ELI_LILLY_AND_COMPANY-FR200610004817

PATIENT
  Age: 77 Year
  Sex: Female
  Weight: 58 kg

DRUGS (8)
  1. CIPRALAN [Concomitant]
     Indication: ARRHYTHMIA
     Dosage: 0.5 D/F, EACH MORNING
     Route: 048
     Dates: start: 20030101, end: 20060925
  2. CIPRALAN [Concomitant]
     Dosage: 0.5 D/F, EACH EVENING
     Route: 048
     Dates: start: 20030101
  3. TAHOR [Concomitant]
     Indication: HYPERCHOLESTEROLAEMIA
     Dosage: 10 MG, DAILY (1/D)
     Route: 048
     Dates: start: 20040101
  4. PRETERAX [Concomitant]
     Indication: HYPERTENSION
     Dosage: 1 D/F, DAILY (1/D)
     Route: 048
     Dates: start: 20050101
  5. COUMADIN [Concomitant]
     Indication: ARRHYTHMIA
     Dosage: 2 MG, DAILY (1/D)
     Route: 048
     Dates: start: 20040101
  6. CALCIDOSE VITAMINE D [Concomitant]
     Indication: OSTEOPOROSIS
     Dosage: 1 D/F, DAILY (1/D)
     Route: 048
     Dates: start: 20060101
  7. VASTAREL [Concomitant]
     Dosage: 2 D/F, DAILY (1/D)
     Route: 048
     Dates: start: 20050101
  8. FORTEO [Suspect]
     Indication: OSTEOPOROSIS
     Dosage: 20 UG, DAILY (1/D)
     Route: 058
     Dates: start: 20050916

REACTIONS (3)
  - CARDIAC FAILURE [None]
  - COMPLETED SUICIDE [None]
  - OVERDOSE [None]
